FAERS Safety Report 22212484 (Version 2)
Quarter: 2023Q2

REPORT INFORMATION
  Report Type: Spontaneous
  Country: US (occurrence: US)
  Receive Date: 20230414
  Receipt Date: 20230503
  Transmission Date: 20230722
  Serious: Yes (Death, Other)
  Sender: FDA-Public Use
  Company Number: US-JNJFOC-20230426684

PATIENT
  Sex: Female

DRUGS (2)
  1. RISPERDAL [Suspect]
     Active Substance: RISPERIDONE
     Indication: Product used for unknown indication
     Dosage: THE MOST RECENT DOSE OF DRUG ADMINISTERED WAS /JUL/2017
     Route: 065
     Dates: start: 2007
  2. HALOPERIDOL [Suspect]
     Active Substance: HALOPERIDOL
     Indication: Product used for unknown indication
     Dosage: THE MOST RECENT DOSE OF DRUG ADMINISTERED WAS /JUL/2017
     Route: 065
     Dates: start: 2015

REACTIONS (4)
  - Overdose [Fatal]
  - Hypoxic-ischaemic encephalopathy [Unknown]
  - Movement disorder [Unknown]
  - Dyspnoea [Unknown]

NARRATIVE: CASE EVENT DATE: 20170101
